FAERS Safety Report 13232002 (Version 3)
Quarter: 2019Q2

REPORT INFORMATION
  Report Type: Spontaneous
  Country: IT (occurrence: IT)
  Receive Date: 20170214
  Receipt Date: 20190620
  Transmission Date: 20190711
  Serious: Yes (Other)
  Sender: FDA-Public Use
  Company Number: IT-INDIVIOR LIMITED-INDV-098660-2017

PATIENT
  Age: 45 Year
  Sex: Male

DRUGS (2)
  1. BUPRENORPHINE. [Suspect]
     Active Substance: BUPRENORPHINE
     Indication: PRODUCT USED FOR UNKNOWN INDICATION
     Dosage: 3-4 TIMES A DAY FOR MORE THAN 5 YEARS
     Route: 042
  2. ALCOHOL. [Suspect]
     Active Substance: ALCOHOL
     Indication: PRODUCT USED FOR UNKNOWN INDICATION
     Dosage: 1?1?5 L OF WINE PER DAY
     Route: 048

REACTIONS (5)
  - Hepatitis C [Unknown]
  - Oedema peripheral [Unknown]
  - Intentional product use issue [Unknown]
  - Intentional product misuse [Unknown]
  - Alcohol abuse [Unknown]
